FAERS Safety Report 19806891 (Version 10)
Quarter: 2022Q1

REPORT INFORMATION
  Report Type: Other
  Country: FR (occurrence: FR)
  Receive Date: 20210909
  Receipt Date: 20220324
  Transmission Date: 20220423
  Serious: Yes (Hospitalization)
  Sender: FDA-Public Use
  Company Number: FR-CELLTRION INC.-2021FR011974

PATIENT

DRUGS (7)
  1. RITUXIMAB [Suspect]
     Active Substance: RITUXIMAB
     Indication: Granulomatosis with polyangiitis
     Dosage: DOSING DETAILS: 2 DOSAGE FORM
     Route: 041
     Dates: start: 20210609, end: 20210616
  2. RITUXIMAB [Suspect]
     Active Substance: RITUXIMAB
     Dosage: 2 DOSAGE FORM
     Route: 042
     Dates: start: 20210609, end: 20210616
  3. BACTRIM [Suspect]
     Active Substance: SULFAMETHOXAZOLE\TRIMETHOPRIM
     Indication: Granulomatosis with polyangiitis
     Dosage: DOSE: 800/160 MG, FREQUENCY: 2 DOSAGE FORM EVERY 1 DAY(S)
     Route: 048
     Dates: start: 202103
  4. PREDNISONE [Suspect]
     Active Substance: PREDNISONE
     Indication: Granulomatosis with polyangiitis
     Dosage: 60 MG, 1X/DAY
     Route: 048
     Dates: start: 202103
  5. PREVENAR [Suspect]
     Active Substance: PNEUMOCOCCAL 7-VALENT CONJUGATE VACCINE (DIPHTHERIA CRM197 PROTEIN)
     Indication: Immunisation
     Dosage: 1 DOSAGE FORM TOTAL, SUSPENSION FOR INJECTION IN PREFILLED SYRINGE SUSPENSION FOR INJECTION IN PREFI
     Route: 030
     Dates: start: 20210521, end: 20210521
  6. OXYCODONE HYDROCHLORIDE [Suspect]
     Active Substance: OXYCODONE HYDROCHLORIDE
     Indication: Pain
     Dosage: INCONNUE
     Route: 048
  7. COMIRNATY [Suspect]
     Active Substance: TOZINAMERAN
     Indication: COVID-19 immunisation
     Dosage: 1 DOSAGE FORM TOTAL
     Route: 030
     Dates: start: 20210521, end: 20210521

REACTIONS (3)
  - Myocarditis [Recovering/Resolving]
  - Off label use [Unknown]
  - Off label use [Unknown]

NARRATIVE: CASE EVENT DATE: 20210301
